FAERS Safety Report 9245705 (Version 1)
Quarter: 2013Q2

REPORT INFORMATION
  Report Type: Spontaneous
  Country: US (occurrence: US)
  Receive Date: 20130422
  Receipt Date: 20130422
  Transmission Date: 20140414
  Serious: Yes (Other)
  Sender: FDA-Public Use
  Company Number: US-PFIZER INC-2013120809

PATIENT
  Sex: Female

DRUGS (2)
  1. DETROL [Suspect]
     Dosage: UNK
  2. CELEBREX [Suspect]
     Dosage: UNK

REACTIONS (5)
  - Road traffic accident [Unknown]
  - Eye disorder [Unknown]
  - Intraocular pressure increased [Not Recovered/Not Resolved]
  - Cataract [Unknown]
  - Visual acuity reduced [Unknown]
